FAERS Safety Report 15639612 (Version 11)
Quarter: 2022Q3

REPORT INFORMATION
  Report Type: Report from Study
  Country: AU (occurrence: None)
  Receive Date: 20181120
  Receipt Date: 20220810
  Transmission Date: 20221027
  Serious: Yes (Hospitalization)
  Sender: FDA-Public Use
  Company Number: AU-ROCHE-2203520

PATIENT
  Age: 58 Year
  Sex: Male
  Weight: 79.8 kg

DRUGS (25)
  1. VENETOCLAX [Suspect]
     Active Substance: VENETOCLAX
     Indication: Follicular lymphoma
     Dosage: ON 20/OCT/2018, HE RECEIVED MOST RECENT DOSE 800 MG OF VENETOCLAX PRIOR TO AE ONSET
     Route: 048
     Dates: start: 20180813, end: 20181020
  2. OBINUTUZUMAB [Suspect]
     Active Substance: OBINUTUZUMAB
     Indication: Follicular lymphoma
     Dosage: DAY 1, 8, 15 OF CYCLE 1 AND ON DAY 1 OF CYCLES 2 TO 6 ?ON 03/OCT/2018, HE RECEIVED MOST RECENT DOSE
     Route: 042
     Dates: start: 20180813, end: 20181003
  3. POLATUZUMAB VEDOTIN [Suspect]
     Active Substance: POLATUZUMAB VEDOTIN
     Indication: Follicular lymphoma
     Dosage: ON 03/OCT/2018, HE RECEIVED MOST RECENT DOSE 144 MG OF POLATUZUMAB VEDOTIN PRIOR TO AE ONSET.
     Route: 042
     Dates: start: 20180813, end: 20181003
  4. ALLOPURINOL [Concomitant]
     Active Substance: ALLOPURINOL
     Indication: Neoplasm prophylaxis
     Dates: start: 20180727, end: 20181003
  5. OSELTAMIVIR [Concomitant]
     Active Substance: OSELTAMIVIR
     Indication: Pyrexia
     Dates: start: 20181021, end: 20181021
  6. VALTREX [Concomitant]
     Active Substance: VALACYCLOVIR HYDROCHLORIDE
     Dates: start: 20180816, end: 20181021
  7. VALTREX [Concomitant]
     Active Substance: VALACYCLOVIR HYDROCHLORIDE
     Dates: start: 20181025
  8. SODIUM BICARBONATE [Concomitant]
     Active Substance: SODIUM BICARBONATE
     Indication: Stomatitis
     Dates: start: 20180815, end: 20180818
  9. SODIUM BICARBONATE [Concomitant]
     Active Substance: SODIUM BICARBONATE
     Dates: start: 20180819
  10. ACETAMINOPHEN [Concomitant]
     Active Substance: ACETAMINOPHEN
     Indication: Pyrexia
     Dates: start: 20180923
  11. ACETAMINOPHEN [Concomitant]
     Active Substance: ACETAMINOPHEN
     Indication: Arthralgia
     Dates: start: 20181003, end: 20181003
  12. AMOXICILLIN\CLAVULANATE POTASSIUM [Concomitant]
     Active Substance: AMOXICILLIN\CLAVULANATE POTASSIUM
     Dates: start: 20180923, end: 20181002
  13. GENTAMICIN [Concomitant]
     Active Substance: GENTAMICIN
     Indication: Pyrexia
     Dates: start: 20181021, end: 20181021
  14. POTASSIUM CHLORIDE [Concomitant]
     Active Substance: POTASSIUM CHLORIDE
     Indication: Blood potassium decreased
     Dates: start: 20181022, end: 20181025
  15. SODIUM PHOSPHATE [Concomitant]
     Active Substance: SODIUM PHOSPHATE
     Indication: Blood sodium decreased
     Dates: start: 20181022, end: 20181023
  16. BACTROBAN [Concomitant]
     Active Substance: MUPIROCIN\MUPIROCIN CALCIUM
     Dates: start: 20180923, end: 20180928
  17. VALTREX [Concomitant]
     Active Substance: VALACYCLOVIR HYDROCHLORIDE
     Dates: start: 20181025
  18. FILGRASTIM [Concomitant]
     Active Substance: FILGRASTIM
     Indication: Neutropenia
     Dates: start: 20181023, end: 20181026
  19. FILGRASTIM [Concomitant]
     Active Substance: FILGRASTIM
     Dates: start: 20181102, end: 20181103
  20. FILGRASTIM [Concomitant]
     Active Substance: FILGRASTIM
     Dates: start: 20181108, end: 20181111
  21. FILGRASTIM [Concomitant]
     Active Substance: FILGRASTIM
     Dates: start: 20181115
  22. FILGRASTIM [Concomitant]
     Active Substance: FILGRASTIM
     Dates: start: 20181019, end: 20181019
  23. FILGRASTIM [Concomitant]
     Active Substance: FILGRASTIM
     Dates: start: 20180927, end: 20180927
  24. DEXAMETHASONE [Concomitant]
     Active Substance: DEXAMETHASONE
     Route: 048
     Dates: start: 20181003, end: 20181003
  25. LORATADINE [Concomitant]
     Active Substance: LORATADINE
     Route: 048
     Dates: start: 20181003, end: 20181003

REACTIONS (1)
  - Cellulitis [Recovered/Resolved]

NARRATIVE: CASE EVENT DATE: 20181020
